FAERS Safety Report 19937265 (Version 1)
Quarter: 2021Q4

REPORT INFORMATION
  Report Type: Spontaneous
  Country: GB (occurrence: GB)
  Receive Date: 20211010
  Receipt Date: 20211010
  Transmission Date: 20220304
  Serious: Yes (Death)
  Sender: FDA-Public Use
  Company Number: US-ROCHE-548625

PATIENT
  Age: 20 Year
  Sex: Male

DRUGS (1)
  1. ACCUTANE [Suspect]
     Active Substance: ISOTRETINOIN
     Indication: Product used for unknown indication
     Route: 065

REACTIONS (1)
  - Completed suicide [Fatal]
